FAERS Safety Report 8996975 (Version 1)
Quarter: 2012Q4

REPORT INFORMATION
  Report Type: Spontaneous
  Country: US (occurrence: None)
  Receive Date: 20121231
  Receipt Date: 20121231
  Transmission Date: 20130627
  Serious: Yes (Hospitalization)
  Sender: FDA-Public Use
  Company Number: None

PATIENT
  Sex: Female
  Weight: 90.9 kg

DRUGS (3)
  1. BEVACIZUMAB [Suspect]
  2. CARBOPLATIN [Suspect]
  3. PACLITAXEL (TAXOL) [Suspect]

REACTIONS (5)
  - Pyrexia [None]
  - Cough [None]
  - Sinus congestion [None]
  - Febrile neutropenia [None]
  - Pneumonia [None]
